FAERS Safety Report 4333355-7 (Version None)
Quarter: 2004Q2

REPORT INFORMATION
  Report Type: 
  Country: None (occurrence: None)
  Receive Date: 20040406
  Receipt Date: 20030411
  Transmission Date: 20050107
  Serious: Yes (Disabling)
  Sender: FDA-Public Use
  Company Number: US-MERCK-0304USA01392

PATIENT
  Age: 54 Year
  Sex: Female
  Weight: 96 kg

DRUGS (4)
  1. [THERAPY UNSPECIFIED] [Concomitant]
     Indication: BLOOD PRESSURE
     Route: 065
  2. PREMARIN [Concomitant]
     Route: 065
     Dates: start: 19860101, end: 20010101
  3. VIOXX [Suspect]
     Indication: PAIN IN EXTREMITY
     Route: 048
     Dates: start: 19991101, end: 20000628
  4. VIOXX [Suspect]
     Indication: BACK PAIN
     Route: 048
     Dates: start: 19991101, end: 20000628

REACTIONS (44)
  - ASTHENIA [None]
  - ATAXIA [None]
  - CHOKING [None]
  - DEPRESSION [None]
  - DIARRHOEA [None]
  - DIPLOPIA [None]
  - DISTURBANCE IN ATTENTION [None]
  - DRUG EFFECT DECREASED [None]
  - DRUG INEFFECTIVE [None]
  - ELECTROCARDIOGRAM ST SEGMENT DEPRESSION [None]
  - EMOTIONAL DISTRESS [None]
  - FATIGUE [None]
  - FIBROMYALGIA [None]
  - FLUID RETENTION [None]
  - FOOT FRACTURE [None]
  - HEADACHE [None]
  - HERPES ZOSTER [None]
  - HYPERTENSION [None]
  - HYPERTONIC BLADDER [None]
  - HYPOACUSIS [None]
  - INFLUENZA [None]
  - INJURY [None]
  - INTERVERTEBRAL DISC DISORDER [None]
  - INTERVERTEBRAL DISC PROTRUSION [None]
  - INTERVERTEBRAL DISC SPACE NARROWING [None]
  - INTESTINAL FUNCTIONAL DISORDER [None]
  - ISCHAEMIC STROKE [None]
  - LOSS OF EMPLOYMENT [None]
  - MUSCLE CRAMP [None]
  - MUSCLE SPASMS [None]
  - NAUSEA [None]
  - NEPHROLITHIASIS [None]
  - NERVOUSNESS [None]
  - NEURALGIA [None]
  - NIGHT SWEATS [None]
  - PAIN EXACERBATED [None]
  - PAIN IN EXTREMITY [None]
  - PERONEAL NERVE PALSY [None]
  - RADICULITIS [None]
  - SLEEP DISORDER [None]
  - SPINAL COLUMN STENOSIS [None]
  - THINKING ABNORMAL [None]
  - VISION BLURRED [None]
  - WEIGHT DECREASED [None]
